FAERS Safety Report 9887639 (Version 1)
Quarter: 2013Q4

REPORT INFORMATION
  Report Type: Spontaneous
  Country: US (occurrence: None)
  Receive Date: 20131223
  Receipt Date: 20131223
  Transmission Date: 20140711
  Serious: No
  Sender: FDA-Public Use
  Company Number: 220291LEO

PATIENT
  Age: 70 Year
  Sex: Female

DRUGS (1)
  1. PICATO (0.015%, GEL) [Suspect]
     Indication: BASAL CELL CARCINOMA
     Dosage: FOR 3 NIGHTS, TOPICAL
     Route: 061
     Dates: start: 20130125

REACTIONS (9)
  - Swelling [None]
  - Blister [None]
  - Application site swelling [None]
  - Erythema [None]
  - Hypoaesthesia oral [None]
  - Dry mouth [None]
  - Off label use [None]
  - Off label use [None]
  - Accidental exposure to product [None]
